FAERS Safety Report 23263559 (Version 1)
Quarter: 2023Q4

REPORT INFORMATION
  Report Type: Spontaneous
  Country: US (occurrence: US)
  Receive Date: 20231205
  Receipt Date: 20231205
  Transmission Date: 20240110
  Serious: Yes (Other)
  Sender: FDA-Public Use
  Company Number: US-PFIZER INC-202300420751

PATIENT
  Age: 81 Year
  Sex: Male
  Weight: 91.63 kg

DRUGS (1)
  1. PAXLOVID [Suspect]
     Active Substance: NIRMATRELVIR\RITONAVIR
     Indication: COVID-19 treatment
     Dosage: UNK
     Dates: start: 20231121, end: 20231125

REACTIONS (9)
  - Hypertension [Unknown]
  - Diarrhoea [Recovering/Resolving]
  - Feeling abnormal [Unknown]
  - Pain [Unknown]
  - Sinus congestion [Not Recovered/Not Resolved]
  - Productive cough [Unknown]
  - Headache [Unknown]
  - Oral mucosal blistering [Recovered/Resolved]
  - Arthralgia [Unknown]

NARRATIVE: CASE EVENT DATE: 20231101
